FAERS Safety Report 9589916 (Version 2)
Quarter: 2013Q4

REPORT INFORMATION
  Report Type: Spontaneous
  Country: US (occurrence: US)
  Receive Date: 20131003
  Receipt Date: 20131003
  Transmission Date: 20140711
  Serious: No
  Sender: FDA-Public Use
  Company Number: US-AMGEN-USASP2012071014

PATIENT
  Age: 52 Year
  Sex: Male
  Weight: 120.18 kg

DRUGS (8)
  1. ENBREL [Suspect]
     Indication: PSORIASIS
     Dosage: UNK UNK, 2 TIMES/WK
     Route: 058
     Dates: start: 20120512, end: 20121021
  2. LOTREL [Concomitant]
     Indication: HYPERTENSION
     Dosage: UNK
     Route: 048
     Dates: start: 2008
  3. LOPID [Concomitant]
  4. LAMICTAL [Concomitant]
  5. CYMBALTA [Concomitant]
  6. ZYRTEC [Concomitant]
  7. TESTOSTERONE [Concomitant]
  8. VYTORIN [Concomitant]
     Indication: BLOOD CHOLESTEROL INCREASED
     Dosage: 40 UNK, UNK
     Route: 048
     Dates: start: 2010

REACTIONS (2)
  - Drug ineffective [Not Recovered/Not Resolved]
  - Psoriasis [Not Recovered/Not Resolved]
